FAERS Safety Report 25925521 (Version 1)
Quarter: 2025Q4

REPORT INFORMATION
  Report Type: Spontaneous
  Country: US (occurrence: None)
  Receive Date: 20251014
  Receipt Date: 20251014
  Transmission Date: 20260117
  Serious: Yes (Death)
  Sender: FDA-CTU
  Company Number: None

PATIENT
  Age: 68 Year
  Sex: Male
  Weight: 79 kg

DRUGS (7)
  1. CARVYKTI [Suspect]
     Active Substance: CILTACABTAGENE AUTOLEUCEL
     Indication: Plasma cell myeloma
     Dosage: OTHER STRENGTH : 0.6X10^6 CART TCEL;?FREQUENCY : ONCE;?
     Route: 042
     Dates: start: 20250811, end: 20250811
  2. FOSCARNET [Concomitant]
     Active Substance: FOSCARNET
  3. GANCICLOVIR [Concomitant]
     Active Substance: GANCICLOVIR
  4. VANCOMYCIN [Concomitant]
     Active Substance: VANCOMYCIN
  5. DEXAMETHASONE [Concomitant]
     Active Substance: DEXAMETHASONE
  6. ANAKINRA [Concomitant]
     Active Substance: ANAKINRA
  7. SILTUXIMAB [Concomitant]
     Active Substance: SILTUXIMAB

REACTIONS (4)
  - Cytokine release syndrome [None]
  - Immune effector cell-associated neurotoxicity syndrome [None]
  - Human herpesvirus 6 encephalitis [None]
  - Haemodialysis [None]

NARRATIVE: CASE EVENT DATE: 20250916
